FAERS Safety Report 7798570-9 (Version None)
Quarter: 2011Q4

REPORT INFORMATION
  Report Type: 
  Country: None (occurrence: None)
  Receive Date: 20111005
  Receipt Date: 20110926
  Transmission Date: 20120403
  Serious: Yes (Disabling)
  Sender: FDA-Public Use
  Company Number: JP-MERCK-1102USA02416

PATIENT
  Age: 60 Year
  Sex: Female

DRUGS (9)
  1. APIDRA [Concomitant]
     Route: 065
     Dates: start: 20110113
  2. ROCALTROL [Concomitant]
     Route: 065
  3. ASPARA CA [Concomitant]
     Route: 065
  4. JANUVIA [Suspect]
     Indication: TYPE 1 DIABETES MELLITUS
     Route: 048
     Dates: start: 20110113, end: 20110217
  5. CRESTOR [Concomitant]
     Route: 065
  6. ACTONEL [Concomitant]
     Route: 065
  7. METFORMIN HCL [Concomitant]
     Route: 065
  8. BASEN OD [Concomitant]
     Route: 065
  9. LANTUS [Concomitant]
     Route: 065

REACTIONS (1)
  - MACULAR OEDEMA [None]
